FAERS Safety Report 5246750-9 (Version None)
Quarter: 2007Q1

REPORT INFORMATION
  Report Type: 
  Country: None (occurrence: None)
  Receive Date: 20070220
  Receipt Date: 20070209
  Transmission Date: 20070707
  Serious: Yes (Other)
  Sender: FDA-Public Use
  Company Number: S07-USA-00010-01

PATIENT
  Age: 38 Year
  Sex: Female

DRUGS (7)
  1. CAMPRAL [Suspect]
     Indication: ALCOHOLISM
     Dosage: 666 MG TID PO
     Route: 048
     Dates: start: 20061202, end: 20061201
  2. LITHIUM CARBONATE [Suspect]
     Indication: ALCOHOLISM
     Dosage: 600 MG QAM
  3. LITHIUM CARBONATE [Suspect]
     Indication: ALCOHOLISM
     Dosage: 900 MG QHS
  4. SEROQUEL [Concomitant]
  5. LORAZEPAM [Concomitant]
  6. WELLBUTRIN [Concomitant]
  7. PROZAC [Concomitant]

REACTIONS (3)
  - GAIT DISTURBANCE [None]
  - THERAPEUTIC AGENT TOXICITY [None]
  - TREMOR [None]
